FAERS Safety Report 10792674 (Version 1)
Quarter: 2015Q1

REPORT INFORMATION
  Report Type: Spontaneous
  Country: US (occurrence: US)
  Receive Date: 20150213
  Receipt Date: 20150213
  Transmission Date: 20150721
  Serious: No
  Sender: FDA-Public Use
  Company Number: US-TARO-2014P1000100

PATIENT
  Sex: Male
  Weight: 84.82 kg

DRUGS (7)
  1. CLOMIPRAMINE [Suspect]
     Active Substance: CLOMIPRAMINE
     Route: 048
     Dates: start: 201312
  2. LEXAPRO [Concomitant]
     Active Substance: ESCITALOPRAM OXALATE
  3. SYNTHROID [Concomitant]
     Active Substance: LEVOTHYROXINE SODIUM
  4. METOPROLOL [Concomitant]
     Active Substance: METOPROLOL
  5. DEPAKOTE [Concomitant]
     Active Substance: DIVALPROEX SODIUM
  6. CLOMIPRAMINE [Suspect]
     Active Substance: CLOMIPRAMINE
     Dates: start: 1995, end: 2007
  7. CLOMIPRAMINE [Suspect]
     Active Substance: CLOMIPRAMINE
     Route: 048
     Dates: start: 201112

REACTIONS (2)
  - Somnolence [Recovering/Resolving]
  - Mental impairment [Recovering/Resolving]
